FAERS Safety Report 24403541 (Version 1)
Quarter: 2024Q4

REPORT INFORMATION
  Report Type: Report from Study
  Country: IT (occurrence: IT)
  Receive Date: 20241007
  Receipt Date: 20241007
  Transmission Date: 20250115
  Serious: No
  Sender: ROCHE
  Company Number: IT-ROCHE-2641133

PATIENT
  Age: 55 Year
  Sex: Female

DRUGS (1)
  1. OBINUTUZUMAB [Suspect]
     Active Substance: OBINUTUZUMAB
     Indication: Follicular lymphoma
     Dosage: NUMBER OF CYCLES RECEIVED: 5. INDUCTION CYCLE 1: 1000 MG ON DAY 1,8 AND 15 OF A 28-DAY CYCLE. INDUCT
     Route: 042
     Dates: start: 20200107

REACTIONS (3)
  - Seborrhoeic dermatitis [Recovered/Resolved]
  - Folliculitis [Recovered/Resolved]
  - Off label use [Unknown]

NARRATIVE: CASE EVENT DATE: 20200603
